FAERS Safety Report 17771196 (Version 1)
Quarter: 2020Q2

REPORT INFORMATION
  Report Type: Spontaneous
  Country: US (occurrence: US)
  Receive Date: 20200512
  Receipt Date: 20200512
  Transmission Date: 20200714
  Serious: No
  Sender: FDA-Public Use
  Company Number: US-PERRIGO-19US007850

PATIENT
  Age: 2 Year
  Sex: Female

DRUGS (1)
  1. PERMETHRIN. [Suspect]
     Active Substance: PERMETHRIN
     Indication: ACARODERMATITIS
     Dosage: ONE APPLICATION, SINGLE
     Route: 061
     Dates: start: 20190622, end: 20190622

REACTIONS (4)
  - Application site discolouration [Not Recovered/Not Resolved]
  - Application site rash [Not Recovered/Not Resolved]
  - Wrong technique in product usage process [Recovered/Resolved]
  - Rash [Not Recovered/Not Resolved]

NARRATIVE: CASE EVENT DATE: 20190622
